FAERS Safety Report 9781304 (Version 2)
Quarter: 2014Q2

REPORT INFORMATION
  Report Type: Spontaneous
  Country: US (occurrence: US)
  Receive Date: 20131224
  Receipt Date: 20140411
  Transmission Date: 20141212
  Serious: Yes (Other)
  Sender: FDA-Public Use
  Company Number: US-GILEAD-2013-0090553

PATIENT
  Age: 34 Year
  Sex: Female

DRUGS (2)
  1. LETAIRIS [Suspect]
     Indication: PULMONARY HYPERTENSION
     Dosage: 10 MG, QD
     Route: 048
     Dates: start: 20130215
  2. OXYGEN [Concomitant]

REACTIONS (4)
  - Lung operation [Unknown]
  - Cardiac operation [Unknown]
  - Nerve injury [Unknown]
  - Oxygen supplementation [Unknown]
